FAERS Safety Report 25638287 (Version 1)
Quarter: 2025Q3

REPORT INFORMATION
  Report Type: Report from Study
  Country: US (occurrence: US)
  Receive Date: 20250804
  Receipt Date: 20250804
  Transmission Date: 20251020
  Serious: Yes (Other)
  Sender: ABBVIE
  Company Number: US-ABBVIE-6100942

PATIENT
  Age: 34 Year
  Sex: Female

DRUGS (3)
  1. RINVOQ [Suspect]
     Active Substance: UPADACITINIB
     Indication: Colitis ulcerative
     Dosage: FOR 8 WEEKS, THERAPY END DATE 2024
     Route: 048
     Dates: start: 20240721
  2. RINVOQ [Suspect]
     Active Substance: UPADACITINIB
     Indication: Colitis ulcerative
     Dosage: STRENGTH 30 MG
     Route: 048
     Dates: start: 20240908, end: 20250702
  3. RINVOQ [Suspect]
     Active Substance: UPADACITINIB
     Indication: Colitis ulcerative
     Route: 048

REACTIONS (14)
  - Ovarian cyst [Unknown]
  - Nasopharyngitis [Recovering/Resolving]
  - Productive cough [Recovering/Resolving]
  - Fatigue [Recovered/Resolved]
  - Insomnia [Unknown]
  - Constipation [Unknown]
  - Hand-foot-and-mouth disease [Recovered/Resolved]
  - Flatulence [Unknown]
  - Asthenia [Recovered/Resolved]
  - Energy increased [Unknown]
  - Fatigue [Unknown]
  - Insomnia [Unknown]
  - Abdominal distension [Unknown]
  - Frequent bowel movements [Unknown]

NARRATIVE: CASE EVENT DATE: 20250101
